FAERS Safety Report 16663523 (Version 1)
Quarter: 2019Q3

REPORT INFORMATION
  Report Type: Report from Study
  Country: US (occurrence: US)
  Receive Date: 20190802
  Receipt Date: 20190802
  Transmission Date: 20191004
  Serious: No
  Sender: FDA-Public Use
  Company Number: US-EXELIXIS-CABO-19020613

PATIENT
  Sex: Female

DRUGS (1)
  1. CABOMETYX [Suspect]
     Active Substance: CABOZANTINIB S-MALATE
     Indication: NEUROENDOCRINE CARCINOMA
     Dosage: 40 MG, QD (IN THE MORNING WITHOUT FOOD)
     Dates: start: 20190412, end: 2019

REACTIONS (7)
  - Vomiting [Unknown]
  - Fatigue [Not Recovered/Not Resolved]
  - Off label use [Unknown]
  - Decreased appetite [Unknown]
  - Wheezing [Unknown]
  - Nausea [Not Recovered/Not Resolved]
  - Thirst decreased [Unknown]

NARRATIVE: CASE EVENT DATE: 2019
